FAERS Safety Report 9475209 (Version 1)
Quarter: 2013Q3

REPORT INFORMATION
  Report Type: Spontaneous
  Country: DE (occurrence: DE)
  Receive Date: 20130825
  Receipt Date: 20130825
  Transmission Date: 20140515
  Serious: Yes (Hospitalization, Other)
  Sender: FDA-Public Use
  Company Number: DE-MYLANLABS-2013S1018170

PATIENT
  Sex: Male
  Weight: 3.26 kg

DRUGS (2)
  1. CITALOPRAM [Suspect]
     Dosage: 60 [MG/D ]
     Route: 064
     Dates: start: 20090101, end: 20090919
  2. QUETIAPINE [Suspect]
     Dosage: 600 [MG/D ]
     Route: 064
     Dates: start: 20090101, end: 20090919

REACTIONS (3)
  - Agitation neonatal [Recovered/Resolved]
  - Neonatal respiratory distress syndrome [Recovered/Resolved]
  - Exposure during pregnancy [Recovered/Resolved]
